FAERS Safety Report 18120245 (Version 1)
Quarter: 2020Q3

REPORT INFORMATION
  Report Type: Report from Study
  Country: US (occurrence: US)
  Receive Date: 20200806
  Receipt Date: 20200806
  Transmission Date: 20201103
  Serious: Yes (Hospitalization, Other)
  Sender: FDA-Public Use
  Company Number: US-BAYER-2020-157128

PATIENT
  Age: 70 Year
  Sex: Male
  Weight: 86.17 kg

DRUGS (4)
  1. DILTIAZEM. [Concomitant]
     Active Substance: DILTIAZEM
     Dosage: UNK
  2. ADEMPAS [Suspect]
     Active Substance: RIOCIGUAT
     Indication: PULMONARY ARTERIAL HYPERTENSION
     Dosage: 2.5 MG, TID
     Route: 048
  3. ADEMPAS [Suspect]
     Active Substance: RIOCIGUAT
     Indication: PULMONARY ARTERIAL HYPERTENSION
     Dosage: UNK
     Dates: start: 20160711
  4. TYVASO [Concomitant]
     Active Substance: TREPROSTINIL
     Dosage: UNK

REACTIONS (4)
  - Feeling abnormal [None]
  - Ammonia increased [None]
  - Diarrhoea [None]
  - Blood potassium decreased [None]
